FAERS Safety Report 7971476-8 (Version None)
Quarter: 2011Q4

REPORT INFORMATION
  Report Type: 
  Country: None (occurrence: None)
  Receive Date: 20111212
  Receipt Date: 20111206
  Transmission Date: 20120403
  Serious: No
  Sender: FDA-Public Use
  Company Number: US-PFIZER INC-2011268188

PATIENT
  Sex: Female
  Weight: 79.365 kg

DRUGS (2)
  1. DARVOCET [Suspect]
  2. PENICILLIN G BENZATHINE AND PENICILLIN G PROCAINE [Suspect]

REACTIONS (1)
  - NO ADVERSE EVENT [None]
